FAERS Safety Report 13622441 (Version 1)
Quarter: 2017Q2

REPORT INFORMATION
  Report Type: Spontaneous
  Country: US (occurrence: US)
  Receive Date: 20170607
  Receipt Date: 20170607
  Transmission Date: 20170830
  Serious: No
  Sender: FDA-Public Use
  Company Number: US-ROCHE-1875830

PATIENT
  Sex: Male

DRUGS (1)
  1. XELODA [Suspect]
     Active Substance: CAPECITABINE
     Indication: UNEVALUABLE EVENT
     Dosage: FOR 14 DAYS, OFF FOR 7
     Route: 048
     Dates: start: 20161110

REACTIONS (3)
  - Skin fissures [Unknown]
  - Skin discolouration [Unknown]
  - Tongue discolouration [Unknown]
